FAERS Safety Report 10489601 (Version 1)
Quarter: 2014Q4

REPORT INFORMATION
  Report Type: Spontaneous
  Country: US (occurrence: US)
  Receive Date: 20141002
  Receipt Date: 20141002
  Transmission Date: 20150528
  Serious: No
  Sender: FDA-Public Use
  Company Number: US-009507513-1409USA013406

PATIENT
  Sex: Male

DRUGS (1)
  1. ASMANEX [Suspect]
     Active Substance: MOMETASONE FUROATE
     Dosage: 1 PUFF ONCE A DAY
     Route: 055
     Dates: start: 20140804

REACTIONS (4)
  - No adverse event [Unknown]
  - Accidental overdose [Unknown]
  - Underdose [Unknown]
  - Product container issue [Unknown]

NARRATIVE: CASE EVENT DATE: 2014
